FAERS Safety Report 9496421 (Version 2)
Quarter: 2013Q3

REPORT INFORMATION
  Report Type: Spontaneous
  Country: US (occurrence: None)
  Receive Date: 20130829
  Receipt Date: 20130920
  Transmission Date: 20140515
  Serious: Yes (Other)
  Sender: FDA-Public Use
  Company Number: ACO_36957_2013

PATIENT
  Age: 47 Year
  Sex: Female

DRUGS (4)
  1. AMPYRA (DALFAMPRIDINE) TABLET, 10MG [Suspect]
     Indication: MULTIPLE SCLEROSIS
     Route: 048
     Dates: start: 201206
  2. AMPYRA (DALFAMPRIDINE) TABLET, 10MG [Suspect]
     Indication: GAIT DISTURBANCE
     Route: 048
     Dates: start: 201206
  3. GILENYA (FINGOLIMOD HYDROCHLORIDE) [Concomitant]
  4. PREMARIN (ESTROGENS CONJUGATED) [Concomitant]

REACTIONS (2)
  - White blood cell count decreased [None]
  - Dry mouth [None]
